FAERS Safety Report 21474250 (Version 2)
Quarter: 2022Q4

REPORT INFORMATION
  Report Type: Report from Study
  Country: JP (occurrence: JP)
  Receive Date: 20221018
  Receipt Date: 20221026
  Transmission Date: 20230112
  Serious: Yes (Hospitalization)
  Sender: FDA-Public Use
  Company Number: JP-PFIZER INC-PV202200081884

PATIENT
  Age: 82 Year
  Sex: Male
  Weight: 40 kg

DRUGS (17)
  1. NIRMATRELVIR\RITONAVIR [Suspect]
     Active Substance: NIRMATRELVIR\RITONAVIR
     Indication: COVID-19 treatment
     Dosage: [PF-07321332 300 MG]/[RITONAVIR 100 MG]; 2X/DAY
     Dates: start: 20220815, end: 20220817
  2. CALCIUM CHLORIDE ANHYDROUS\POTASSIUM CHLORIDE\SODIUM CHLORIDE\SODIUM L [Concomitant]
     Active Substance: CALCIUM CHLORIDE ANHYDROUS\POTASSIUM CHLORIDE\SODIUM CHLORIDE\SODIUM LACTATE
     Indication: COVID-19
     Dosage: UNK
     Dates: start: 20220815, end: 20220815
  3. LANSOPRAZOLE [Concomitant]
     Active Substance: LANSOPRAZOLE
     Indication: Prophylaxis against gastrointestinal ulcer
     Dosage: UNK
     Route: 048
     Dates: start: 20220815, end: 20220818
  4. LANSOPRAZOLE [Concomitant]
     Active Substance: LANSOPRAZOLE
     Dosage: UNK
     Route: 048
     Dates: start: 20220830
  5. VEKLURY [Concomitant]
     Active Substance: REMDESIVIR
     Indication: COVID-19
     Dosage: UNK
     Dates: start: 20220817, end: 20220821
  6. CITICOLINE [Concomitant]
     Active Substance: CITICOLINE
     Indication: COVID-19
     Dosage: UNK
     Dates: start: 20220817, end: 20220821
  7. CEFTRIAXONE SODIUM [Concomitant]
     Active Substance: CEFTRIAXONE SODIUM
     Indication: COVID-19
     Dosage: UNK
     Route: 041
     Dates: start: 20220817, end: 20220831
  8. SOLU-MEDROL [Concomitant]
     Active Substance: METHYLPREDNISOLONE SODIUM SUCCINATE
     Indication: COVID-19
     Dosage: UNK
     Dates: start: 20220817, end: 20220822
  9. DALTEPARIN SODIUM [Concomitant]
     Active Substance: DALTEPARIN SODIUM
     Indication: COVID-19
     Dosage: UNK
     Dates: start: 20220817, end: 20220824
  10. CINAL [ASCORBIC ACID;CALCIUM PANTOTHENATE] [Concomitant]
     Dosage: UNK
     Route: 048
     Dates: start: 20220830
  11. POLAPREZINC [Concomitant]
     Active Substance: POLAPREZINC
     Indication: Prophylaxis against gastrointestinal ulcer
     Dosage: UNK
     Route: 048
     Dates: start: 20220830
  12. ERYTHROCIN [ERYTHROMYCIN ETHYLSUCCINATE] [Concomitant]
     Dosage: UNK
     Route: 048
     Dates: start: 20220830
  13. EDOXABAN TOSYLATE [Concomitant]
     Active Substance: EDOXABAN TOSYLATE
     Indication: COVID-19
     Dosage: UNK
     Route: 048
     Dates: start: 20220824
  14. MIYA-BM [Concomitant]
     Active Substance: CLOSTRIDIUM BUTYRICUM SPORES STRAIN M-55
     Dosage: UNK
     Route: 048
     Dates: start: 20220830
  15. EPHEDRA SINICA STEM\HERBALS [Concomitant]
     Active Substance: EPHEDRA SINICA STEM\HERBALS
     Dosage: UNK
     Route: 048
     Dates: start: 20220830
  16. CARBOCYSTEINE [Concomitant]
     Active Substance: CARBOCYSTEINE
     Dosage: UNK
     Route: 048
     Dates: start: 20220830
  17. TULOBUTEROL [Concomitant]
     Active Substance: TULOBUTEROL
     Dosage: UNK
     Route: 003
     Dates: start: 20220830

REACTIONS (2)
  - Immobilisation syndrome [Recovering/Resolving]
  - Condition aggravated [Recovering/Resolving]

NARRATIVE: CASE EVENT DATE: 20220831
